FAERS Safety Report 17561126 (Version 2)
Quarter: 2020Q1

REPORT INFORMATION
  Report Type: Spontaneous
  Country: US (occurrence: US)
  Receive Date: 20200319
  Receipt Date: 20200324
  Transmission Date: 20200409
  Serious: Yes (Hospitalization, Other)
  Sender: FDA-Public Use
  Company Number: US-BRISTOL-MYERS SQUIBB COMPANY-BMS-2020-022639

PATIENT
  Age: 89 Year
  Sex: Female
  Weight: 77.11 kg

DRUGS (1)
  1. ELIQUIS [Suspect]
     Active Substance: APIXABAN
     Indication: CEREBROVASCULAR ACCIDENT PROPHYLAXIS
     Dosage: DURATION OF THERAPY: SUMMER OF 2019
     Route: 048
     Dates: start: 2019

REACTIONS (2)
  - Arthropathy [Unknown]
  - Insomnia [Unknown]

NARRATIVE: CASE EVENT DATE: 20200303
